FAERS Safety Report 20432828 (Version 1)
Quarter: 2022Q1

REPORT INFORMATION
  Report Type: Spontaneous
  Country: GB (occurrence: GB)
  Receive Date: 20220205
  Receipt Date: 20220205
  Transmission Date: 20220423
  Serious: Yes (Death, Other)
  Sender: FDA-Public Use
  Company Number: GB-MHRA-EYC 00271792

PATIENT
  Age: 56 Year
  Sex: Male
  Weight: 95.25 kg

DRUGS (3)
  1. AMLODIPINE [Suspect]
     Active Substance: AMLODIPINE BESYLATE
     Indication: Hypertension
     Dosage: 5 MILLIGRAM
     Route: 048
     Dates: start: 20210217, end: 20210711
  2. ASTRAZENECA COVID-19 VACCINE [Suspect]
     Active Substance: AZD-1222
     Indication: COVID-19 immunisation
     Dosage: 1 DOSAGE FORM (DOSE 1)
     Route: 051
     Dates: start: 20210326, end: 20210326
  3. ASTRAZENECA COVID-19 VACCINE [Suspect]
     Active Substance: AZD-1222
     Dosage: 1 DOSAGE FORM (DOSE 2)
     Route: 051
     Dates: start: 20210529, end: 20210529

REACTIONS (10)
  - Small cell lung cancer metastatic [Fatal]
  - Cough [Fatal]
  - Dyspnoea [Fatal]
  - Asthenia [Fatal]
  - Pleural effusion [Fatal]
  - Haemoptysis [Fatal]
  - Wheezing [Fatal]
  - Loss of consciousness [Fatal]
  - Drug interaction [Unknown]
  - Peripheral swelling [Unknown]

NARRATIVE: CASE EVENT DATE: 20210326
